FAERS Safety Report 15645124 (Version 1)
Quarter: 2018Q4

REPORT INFORMATION
  Report Type: Spontaneous
  Country: US (occurrence: US)
  Receive Date: 20181121
  Receipt Date: 20181121
  Transmission Date: 20190205
  Serious: Yes (Other)
  Sender: FDA-Public Use
  Company Number: US-DSJP-DSU-2016-139432

PATIENT

DRUGS (2)
  1. BENICAR [Suspect]
     Active Substance: OLMESARTAN MEDOXOMIL
     Dosage: 20 MG, QD
     Route: 048
     Dates: start: 201611
  2. BENICAR [Suspect]
     Active Substance: OLMESARTAN MEDOXOMIL
     Indication: HYPERTENSION
     Dosage: 20 MG, QD
     Route: 048
     Dates: start: 2011, end: 20161119

REACTIONS (15)
  - Syncope [Unknown]
  - Arrhythmia [Unknown]
  - Dizziness [Unknown]
  - Fall [Recovered/Resolved]
  - Loss of consciousness [Recovered/Resolved]
  - Heart rate increased [Unknown]
  - Palpitations [Unknown]
  - Gait disturbance [Unknown]
  - Cardiac disorder [Unknown]
  - Contusion [Unknown]
  - Pain in extremity [Unknown]
  - Treatment noncompliance [Unknown]
  - Vision blurred [Unknown]
  - Limb discomfort [Unknown]
  - Peripheral swelling [Not Recovered/Not Resolved]

NARRATIVE: CASE EVENT DATE: 2015
